FAERS Safety Report 24903109 (Version 1)
Quarter: 2025Q1

REPORT INFORMATION
  Report Type: Spontaneous
  Country: IN (occurrence: IN)
  Receive Date: 20250130
  Receipt Date: 20250130
  Transmission Date: 20250408
  Serious: Yes (Life-Threatening, Hospitalization)
  Sender: JOHNSON AND JOHNSON
  Company Number: IN-MLMSERVICE-20250110-PI345390-00174-1

PATIENT
  Age: 3 Decade
  Sex: Male

DRUGS (2)
  1. HALOPERIDOL [Suspect]
     Active Substance: HALOPERIDOL
     Indication: Psychotic disorder
     Dosage: AT BEDTIME
     Route: 065
  2. ALPRAZOLAM [Concomitant]
     Active Substance: ALPRAZOLAM
     Indication: Psychotic disorder
     Dosage: AT BEDTIME
     Route: 065

REACTIONS (2)
  - Pneumonitis aspiration [Recovered/Resolved]
  - Dystonia [Recovered/Resolved]
